FAERS Safety Report 19812114 (Version 1)
Quarter: 2021Q3

REPORT INFORMATION
  Report Type: Spontaneous
  Country: US (occurrence: US)
  Receive Date: 20210910
  Receipt Date: 20210910
  Transmission Date: 20211014
  Serious: No
  Sender: FDA-Public Use
  Company Number: US-CADILA HEALTHCARE LIMITED-US-ZYDUS-055985

PATIENT
  Sex: Female

DRUGS (3)
  1. MELOXICAM 15 MILLIGRAM TABLET [Suspect]
     Active Substance: MELOXICAM
     Indication: ARTHRALGIA
     Dosage: 15 MILLIGRAM, QD AS NEEDED
     Route: 048
     Dates: start: 201908
  2. MELOXICAM 15 MILLIGRAM TABLET [Suspect]
     Active Substance: MELOXICAM
     Indication: INFLAMMATION
  3. VITAMINS NOS [Concomitant]
     Active Substance: VITAMINS
     Indication: PRODUCT USED FOR UNKNOWN INDICATION
     Dosage: UNK, QD

REACTIONS (2)
  - Drug screen false positive [Recovered/Resolved]
  - Product use in unapproved indication [Not Recovered/Not Resolved]

NARRATIVE: CASE EVENT DATE: 201908
